FAERS Safety Report 8881713 (Version 1)
Quarter: 2012Q4

REPORT INFORMATION
  Report Type: 
  Country: US (occurrence: US)
  Receive Date: 20121105
  Receipt Date: 20121105
  Transmission Date: 20130627
  Serious: No
  Sender: FDA-Public Use
  Company Number: US-TEVA-364741USA

PATIENT
  Sex: Female

DRUGS (4)
  1. PROAIR HFA [Suspect]
     Indication: ASTHMA
  2. ADVAIR [Concomitant]
  3. ENALAPRIL [Concomitant]
     Indication: HYPERTENSION
  4. HYDROCHLOROTHIAZIDE [Concomitant]

REACTIONS (2)
  - Sneezing [Unknown]
  - Rhinorrhoea [Unknown]
